FAERS Safety Report 6794542-1 (Version None)
Quarter: 2010Q2

REPORT INFORMATION
  Report Type: 
  Country: None (occurrence: None)
  Receive Date: 20100625
  Receipt Date: 20100618
  Transmission Date: 20101027
  Serious: Yes (Hospitalization)
  Sender: FDA-Public Use
  Company Number: FR-KINGPHARMUSA00001-K201000655

PATIENT
  Age: 49 Year
  Sex: Male

DRUGS (7)
  1. ALTACE [Suspect]
     Dosage: 2.5 MG, QD
     Route: 048
     Dates: start: 20091201, end: 20100108
  2. TOPALGIC [Suspect]
     Indication: PAIN
     Dosage: 50 MG, QID
     Route: 048
     Dates: start: 20091201, end: 20100108
  3. PLAVIX [Suspect]
     Dosage: UNK
     Dates: start: 20040101, end: 20100108
  4. CORTANCYL [Concomitant]
     Dosage: UNK
     Dates: start: 20091222, end: 20100110
  5. OMEPRAZOLE [Concomitant]
     Dosage: UNK
     Dates: start: 20080101, end: 20080110
  6. INDOCIN [Concomitant]
     Dosage: UNK
     Dates: start: 20090601, end: 20091217
  7. CRESTOR [Concomitant]
     Dosage: UNK
     Dates: end: 20091217

REACTIONS (17)
  - DERMATITIS BULLOUS [None]
  - DERMATOMYOSITIS [None]
  - ERYTHEMA [None]
  - FACE OEDEMA [None]
  - FOLLICULITIS [None]
  - IMPETIGO [None]
  - INFLAMMATION [None]
  - LYMPHOPENIA [None]
  - MUSCLE ATROPHY [None]
  - MUSCLE NECROSIS [None]
  - NIKOLSKY'S SIGN [None]
  - ORAL CANDIDIASIS [None]
  - RASH [None]
  - RASH MACULO-PAPULAR [None]
  - SKIN EXFOLIATION [None]
  - SKIN NECROSIS [None]
  - STAPHYLOCOCCAL INFECTION [None]
